FAERS Safety Report 4839925-1 (Version None)
Quarter: 2005Q4

REPORT INFORMATION
  Report Type: 
  Country: None (occurrence: None)
  Receive Date: 20051125
  Receipt Date: 20051112
  Transmission Date: 20060501
  Serious: Yes (Hospitalization)
  Sender: FDA-Public Use
  Company Number: 219722

PATIENT
  Sex: Female

DRUGS (1)
  1. MABTHERA                 (RITUXIMAB) [Suspect]
     Indication: RHEUMATOID ARTHRITIS
     Dosage: 1000 MG, DAYS 1 + 15

REACTIONS (1)
  - ANAPHYLACTIC REACTION [None]
